FAERS Safety Report 12108559 (Version 1)
Quarter: 2016Q1

REPORT INFORMATION
  Report Type: Spontaneous
  Country: US (occurrence: None)
  Receive Date: 20160222
  Receipt Date: 20160222
  Transmission Date: 20160526
  Serious: Yes (Death)
  Sender: FDA-Public Use
  Company Number: None

PATIENT
  Age: 60 Year
  Sex: Male

DRUGS (1)
  1. BLINATUMOMAB [Suspect]
     Active Substance: BLINATUMOMAB
     Indication: NEOPLASM MALIGNANT
     Route: 042
     Dates: start: 20150930, end: 20151021

REACTIONS (5)
  - Hemiparesis [None]
  - Toxicity to various agents [None]
  - Somnolence [None]
  - Mental status changes [None]
  - Escherichia infection [None]

NARRATIVE: CASE EVENT DATE: 20151021
